FAERS Safety Report 15933503 (Version 3)
Quarter: 2019Q3

REPORT INFORMATION
  Report Type: Spontaneous
  Country: US (occurrence: US)
  Receive Date: 20190207
  Receipt Date: 20190924
  Transmission Date: 20191004
  Serious: Yes (Other)
  Sender: FDA-Public Use
  Company Number: US-ASTRAZENECA-2018SF21103

PATIENT
  Sex: Female

DRUGS (23)
  1. PRILOSEC [Suspect]
     Active Substance: OMEPRAZOLE MAGNESIUM
     Route: 048
  2. GABAPENTIN. [Concomitant]
     Active Substance: GABAPENTIN
     Route: 048
  3. OXYCODONE [Concomitant]
     Active Substance: OXYCODONE
     Route: 048
  4. LIPITOR [Concomitant]
     Active Substance: ATORVASTATIN CALCIUM
     Route: 048
  5. PRILOSEC [Suspect]
     Active Substance: OMEPRAZOLE MAGNESIUM
     Dosage: GENERIC
     Route: 048
  6. CARBAMAZEPINE. [Concomitant]
     Active Substance: CARBAMAZEPINE
     Route: 048
  7. SOMA [Concomitant]
     Active Substance: CARISOPRODOL
     Route: 048
  8. PEPCID [Concomitant]
     Active Substance: FAMOTIDINE
  9. FLUOXETINE [Concomitant]
     Active Substance: FLUOXETINE HYDROCHLORIDE
     Route: 048
  10. NALOXONE [Concomitant]
     Active Substance: NALOXONE
     Dosage: 1 MG SPRAY IN EACH NOSTRIL
     Route: 048
  11. CEFTRIAXONE. [Concomitant]
     Active Substance: CEFTRIAXONE
     Route: 042
  12. PROTONIX [Suspect]
     Active Substance: PANTOPRAZOLE SODIUM
     Route: 065
     Dates: start: 20150609, end: 20160626
  13. ASPIRIN. [Concomitant]
     Active Substance: ASPIRIN
     Route: 048
  14. CARBAMAZEPINE. [Concomitant]
     Active Substance: CARBAMAZEPINE
     Route: 048
  15. NEXIUM [Suspect]
     Active Substance: ESOMEPRAZOLE MAGNESIUM
     Dosage: GENERIC
     Route: 048
  16. NEXIUM [Suspect]
     Active Substance: ESOMEPRAZOLE MAGNESIUM
     Route: 048
     Dates: start: 20150609, end: 20160626
  17. PROTONIX [Suspect]
     Active Substance: PANTOPRAZOLE SODIUM
     Dosage: GENERIC
     Route: 065
  18. NEXIUM [Suspect]
     Active Substance: ESOMEPRAZOLE MAGNESIUM
     Route: 048
  19. CLONAZEPAM. [Concomitant]
     Active Substance: CLONAZEPAM
     Route: 048
  20. PULMICORT TURBUHALER [Concomitant]
     Active Substance: BUDESONIDE
  21. COLACE [Concomitant]
     Active Substance: DOCUSATE SODIUM
     Dosage: P.R.N
  22. ZEGERID [Suspect]
     Active Substance: OMEPRAZOLE\SODIUM BICARBONATE
     Route: 065
  23. TYLENOL [Concomitant]
     Active Substance: ACETAMINOPHEN
     Indication: PAIN

REACTIONS (5)
  - Tubulointerstitial nephritis [Unknown]
  - Acute kidney injury [Recovered/Resolved]
  - Gastrooesophageal reflux disease [Unknown]
  - Renal failure [Unknown]
  - Chronic kidney disease [Unknown]
